FAERS Safety Report 4305298-6 (Version None)
Quarter: 2004Q1

REPORT INFORMATION
  Report Type: 
  Country: None (occurrence: None)
  Receive Date: 20040226
  Receipt Date: 20030311
  Transmission Date: 20041129
  Serious: No
  Sender: FDA-Public Use
  Company Number: US-BRISTOL-MYERS SQUIBB COMPANY-12209052

PATIENT
  Age: 48 Year
  Sex: Female

DRUGS (4)
  1. TAXOL [Suspect]
     Indication: BREAST CANCER
     Dosage: INITIAL DOSE ON 07-FEB-2003
     Route: 042
     Dates: start: 20030214, end: 20030214
  2. HERCEPTIN [Concomitant]
     Route: 042
  3. BENADRYL [Concomitant]
     Route: 042
  4. DECADRON [Concomitant]

REACTIONS (1)
  - ADVERSE DRUG REACTION [None]
